FAERS Safety Report 21378087 (Version 1)
Quarter: 2022Q3

REPORT INFORMATION
  Report Type: Report from Study
  Country: AR (occurrence: AR)
  Receive Date: 20220926
  Receipt Date: 20220926
  Transmission Date: 20221027
  Serious: Yes (Other)
  Sender: FDA-Public Use
  Company Number: AR-BRISTOL-MYERS SQUIBB COMPANY-2022-105016

PATIENT
  Age: 78 Year
  Sex: Male
  Weight: 65 kg

DRUGS (5)
  1. ELIQUIS [Suspect]
     Active Substance: APIXABAN
     Indication: Cerebrovascular accident prophylaxis
     Route: 065
     Dates: start: 20191218
  2. MESTINON [Concomitant]
     Active Substance: PYRIDOSTIGMINE BROMIDE
     Indication: Product used for unknown indication
     Dates: start: 201007
  3. MERITAL [NOMIFENSINE MALEATE] [Concomitant]
     Indication: Product used for unknown indication
     Dates: start: 202206
  4. NABILA [MEMANTINE HYDROCHLORIDE] [Concomitant]
     Indication: Product used for unknown indication
     Dates: start: 201911
  5. TRANQUINAL [Concomitant]
     Indication: Product used for unknown indication
     Dates: start: 201108

REACTIONS (1)
  - Tooth disorder [Not Recovered/Not Resolved]
